FAERS Safety Report 13218238 (Version 1)
Quarter: 2017Q1

REPORT INFORMATION
  Report Type: Spontaneous
  Country: US (occurrence: US)
  Receive Date: 20170210
  Receipt Date: 20170210
  Transmission Date: 20170428
  Serious: No
  Sender: FDA-Public Use
  Company Number: US-ACORDA-ACO_126223_2016

PATIENT
  Sex: Male

DRUGS (1)
  1. AMPYRA [Suspect]
     Active Substance: DALFAMPRIDINE
     Indication: PRODUCT USED FOR UNKNOWN INDICATION
     Dosage: 10 MG, BID
     Route: 065
     Dates: start: 20160629

REACTIONS (6)
  - Condition aggravated [Unknown]
  - Discomfort [Unknown]
  - Paraesthesia [Unknown]
  - Peroneal nerve palsy [Unknown]
  - Hypoaesthesia [Unknown]
  - Agitation [Unknown]
